FAERS Safety Report 7957393-8 (Version None)
Quarter: 2011Q4

REPORT INFORMATION
  Report Type: 
  Country: None (occurrence: None)
  Receive Date: 20111205
  Receipt Date: 20111124
  Transmission Date: 20120403
  Serious: Yes (Hospitalization)
  Sender: FDA-Public Use
  Company Number: CH-MERCK-1111USA03782

PATIENT
  Age: 82 Year
  Sex: Female

DRUGS (12)
  1. ALDACTONE [Suspect]
     Route: 048
     Dates: end: 20090803
  2. SPASMO URGENIN NEO [Concomitant]
     Route: 048
  3. RAMIPRIL [Suspect]
     Route: 048
     Dates: end: 20090803
  4. COLLUNOSOL (CHLORHEXIDINE GLUCONATE (+) LIDOCAINE HYDROCHLORIDE) [Concomitant]
     Route: 055
     Dates: end: 20090801
  5. NOROXIN [Suspect]
     Route: 048
     Dates: start: 20090730, end: 20090803
  6. TRIALIX [Suspect]
     Dosage: 1/2 TABLET
     Route: 048
     Dates: end: 20090803
  7. OSTEOCAL D3 [Concomitant]
     Route: 048
  8. DIPIPERON [Concomitant]
     Route: 048
  9. ACETAMINOPHEN [Concomitant]
     Route: 048
  10. CONDROSULF [Concomitant]
     Route: 048
     Dates: end: 20090803
  11. TILUR RETARD [Suspect]
     Route: 048
     Dates: end: 20090803
  12. CALCIMAGON D3 [Concomitant]
     Route: 048

REACTIONS (3)
  - RENAL FAILURE ACUTE [None]
  - DUODENAL ULCER [None]
  - GASTROINTESTINAL HAEMORRHAGE [None]
